FAERS Safety Report 5768007-X (Version None)
Quarter: 2008Q2

REPORT INFORMATION
  Report Type: 
  Country: None (occurrence: None)
  Receive Date: 20080601
  Receipt Date: 20080114
  Transmission Date: 20081010
  Serious: Yes (Life-Threatening)
  Sender: FDA-Public Use
  Company Number: US200801003255

PATIENT
  Sex: Female
  Weight: 90.7 kg

DRUGS (1)
  1. BYETTA [Suspect]
     Indication: BLOOD GLUCOSE INCREASED
     Dosage: 5 UG, 2/D, SUBCUTANEOUS
     Route: 058
     Dates: start: 20071002, end: 20071030

REACTIONS (2)
  - ANAPHYLACTIC REACTION [None]
  - INJECTION SITE ERYTHEMA [None]
